FAERS Safety Report 9458338 (Version 2)
Quarter: 2013Q3

REPORT INFORMATION
  Report Type: Spontaneous
  Country: JP (occurrence: JP)
  Receive Date: 20130814
  Receipt Date: 20130815
  Transmission Date: 20140515
  Serious: No
  Sender: FDA-Public Use
  Company Number: JP-PFIZER INC-2013234787

PATIENT
  Age: 5 Decade
  Sex: Male

DRUGS (1)
  1. LYRICA [Suspect]
     Indication: BACK PAIN
     Dosage: UNK
     Route: 048

REACTIONS (4)
  - Nausea [Unknown]
  - Somnolence [Unknown]
  - Feeling abnormal [Unknown]
  - Genital hypoaesthesia [Unknown]
